FAERS Safety Report 5792945-5 (Version None)
Quarter: 2008Q2

REPORT INFORMATION
  Report Type: 
  Country: None (occurrence: None)
  Receive Date: 20080627
  Receipt Date: 20080619
  Transmission Date: 20081010
  Serious: Yes (Hospitalization, Other)
  Sender: FDA-Public Use
  Company Number: US-AMGEN-US288805

PATIENT
  Sex: Female
  Weight: 79.5 kg

DRUGS (9)
  1. PROCRIT [Suspect]
     Indication: ANAEMIA
     Route: 058
     Dates: start: 20020101
  2. AVAPRO [Concomitant]
     Route: 065
  3. ACIPHEX [Concomitant]
     Route: 065
  4. TRICOR [Concomitant]
     Route: 065
  5. CHOLESTYRAMINE [Concomitant]
     Route: 065
  6. AZATHIOPRINE [Concomitant]
     Route: 065
  7. PRIMIDONE [Concomitant]
     Route: 065
  8. HYDROCHLOROTHIAZIDE [Concomitant]
     Route: 065
  9. NEXIUM [Concomitant]
     Route: 065

REACTIONS (2)
  - ANAEMIA [None]
  - GASTROOESOPHAGEAL REFLUX DISEASE [None]
